FAERS Safety Report 13916488 (Version 5)
Quarter: 2018Q1

REPORT INFORMATION
  Report Type: Spontaneous
  Country: US (occurrence: US)
  Receive Date: 20170829
  Receipt Date: 20180208
  Transmission Date: 20180508
  Serious: Yes (Other)
  Sender: FDA-Public Use
  Company Number: US-BRISTOL-MYERS SQUIBB COMPANY-BMS-2017-075942

PATIENT
  Age: 66 Year
  Sex: Male

DRUGS (5)
  1. PROPARACAINE                       /00143101/ [Concomitant]
     Indication: ANAESTHESIA
     Dosage: UNK, Q2H
     Route: 047
     Dates: start: 20170630, end: 20170630
  2. KENALOG-40 [Suspect]
     Active Substance: TRIAMCINOLONE ACETONIDE
     Indication: DIABETIC RETINAL OEDEMA
     Dosage: 2 MG, ONE TIME DOSE
     Route: 047
     Dates: start: 20170630, end: 20170630
  3. TETRACAINE                         /00041402/ [Concomitant]
     Indication: ANAESTHESIA
     Dosage: UNK, QH
     Route: 047
     Dates: start: 20170630, end: 20170630
  4. LIDOCAINE. [Concomitant]
     Active Substance: LIDOCAINE
     Indication: ANAESTHESIA
     Dosage: 1 DF, UNK
     Route: 047
     Dates: start: 20170630, end: 20170630
  5. BETADINE [Concomitant]
     Active Substance: POVIDONE-IODINE
     Indication: ANTIBIOTIC THERAPY
     Dosage: 1 DF, UNK
     Route: 047
     Dates: start: 20170630, end: 20170630

REACTIONS (2)
  - Toxic anterior segment syndrome [Recovered/Resolved]
  - Product use issue [Unknown]

NARRATIVE: CASE EVENT DATE: 20170701
